FAERS Safety Report 14733006 (Version 1)
Quarter: 2018Q2

REPORT INFORMATION
  Report Type: Report from Study
  Country: BR (occurrence: BR)
  Receive Date: 20180409
  Receipt Date: 20180409
  Transmission Date: 20180711
  Serious: Yes (Other)
  Sender: FDA-Public Use
  Company Number: BR-ROCHE-2103361

PATIENT
  Sex: Female
  Weight: 80 kg

DRUGS (4)
  1. KADCYLA [Concomitant]
     Active Substance: ADO-TRASTUZUMAB EMTANSINE
     Indication: BREAST CANCER METASTATIC
     Route: 065
     Dates: start: 20150630, end: 20160705
  2. TAXOL [Concomitant]
     Active Substance: PACLITAXEL
  3. HERCEPTIN [Suspect]
     Active Substance: TRASTUZUMAB
     Indication: BREAST CANCER
     Dosage: SUBSEQUENT DOSE 2 MG/KG
     Route: 065
     Dates: start: 20141020, end: 20150130
  4. PERJETA [Concomitant]
     Active Substance: PERTUZUMAB
     Dosage: SUBSEQUENT CYCLES 420 MG
     Route: 065
     Dates: start: 20141020, end: 20150630

REACTIONS (1)
  - Breast cancer recurrent [Unknown]
